FAERS Safety Report 25930658 (Version 1)
Quarter: 2025Q4

REPORT INFORMATION
  Report Type: Spontaneous
  Country: EU (occurrence: EU)
  Receive Date: 20251016
  Receipt Date: 20251016
  Transmission Date: 20260118
  Serious: Yes (Hospitalization)
  Sender: MYLAN
  Company Number: EU-MYLANLABS-2025M1087489

PATIENT
  Sex: Female

DRUGS (92)
  1. METHOTREXATE [Suspect]
     Active Substance: METHOTREXATE
     Indication: Acute lymphocytic leukaemia
     Dosage: 500 MILLIGRAM/SQ. METER
  2. METHOTREXATE [Suspect]
     Active Substance: METHOTREXATE
     Dosage: 500 MILLIGRAM/SQ. METER
     Route: 042
  3. METHOTREXATE [Suspect]
     Active Substance: METHOTREXATE
     Dosage: 500 MILLIGRAM/SQ. METER
     Route: 042
  4. METHOTREXATE [Suspect]
     Active Substance: METHOTREXATE
     Dosage: 500 MILLIGRAM/SQ. METER
  5. METHOTREXATE [Suspect]
     Active Substance: METHOTREXATE
     Dosage: 500 MILLIGRAM/SQ. METER, FOR 4 DOSES GIVEN 2 WEEKS APART
  6. METHOTREXATE [Suspect]
     Active Substance: METHOTREXATE
     Dosage: 500 MILLIGRAM/SQ. METER, FOR 4 DOSES GIVEN 2 WEEKS APART
     Route: 042
  7. METHOTREXATE [Suspect]
     Active Substance: METHOTREXATE
     Dosage: 500 MILLIGRAM/SQ. METER, FOR 4 DOSES GIVEN 2 WEEKS APART
  8. METHOTREXATE [Suspect]
     Active Substance: METHOTREXATE
     Dosage: 500 MILLIGRAM/SQ. METER, FOR 4 DOSES GIVEN 2 WEEKS APART
     Route: 042
  9. METHOTREXATE [Suspect]
     Active Substance: METHOTREXATE
     Dosage: UNK, MAINTAINED AND LATER WITHDRAWN
     Route: 042
  10. METHOTREXATE [Suspect]
     Active Substance: METHOTREXATE
     Dosage: UNK, MAINTAINED AND LATER WITHDRAWN
     Route: 042
  11. METHOTREXATE [Suspect]
     Active Substance: METHOTREXATE
     Dosage: UNK, MAINTAINED AND LATER WITHDRAWN
  12. METHOTREXATE [Suspect]
     Active Substance: METHOTREXATE
     Dosage: UNK, MAINTAINED AND LATER WITHDRAWN
  13. MERCAPTOPURINE [Suspect]
     Active Substance: MERCAPTOPURINE
     Indication: Acute lymphocytic leukaemia
     Dosage: 60 MILLIGRAM/SQ. METER, QD, FOR 28 CONSECUTIVE DAYS
  14. MERCAPTOPURINE [Suspect]
     Active Substance: MERCAPTOPURINE
     Dosage: 60 MILLIGRAM/SQ. METER, QD, FOR 28 CONSECUTIVE DAYS
     Route: 048
  15. MERCAPTOPURINE [Suspect]
     Active Substance: MERCAPTOPURINE
     Dosage: 60 MILLIGRAM/SQ. METER, QD, FOR 28 CONSECUTIVE DAYS
     Route: 048
  16. MERCAPTOPURINE [Suspect]
     Active Substance: MERCAPTOPURINE
     Dosage: 60 MILLIGRAM/SQ. METER, QD, FOR 28 CONSECUTIVE DAYS
  17. MERCAPTOPURINE [Suspect]
     Active Substance: MERCAPTOPURINE
     Dosage: 60 MILLIGRAM/SQ. METER, QD, FOR 56 CONSECUTIVE DAYS
  18. MERCAPTOPURINE [Suspect]
     Active Substance: MERCAPTOPURINE
     Dosage: 60 MILLIGRAM/SQ. METER, QD, FOR 56 CONSECUTIVE DAYS
     Route: 048
  19. MERCAPTOPURINE [Suspect]
     Active Substance: MERCAPTOPURINE
     Dosage: 60 MILLIGRAM/SQ. METER, QD, FOR 56 CONSECUTIVE DAYS
  20. MERCAPTOPURINE [Suspect]
     Active Substance: MERCAPTOPURINE
     Dosage: 60 MILLIGRAM/SQ. METER, QD, FOR 56 CONSECUTIVE DAYS
     Route: 048
  21. MERCAPTOPURINE [Suspect]
     Active Substance: MERCAPTOPURINE
     Dosage: UNK, MAINTAINED AND LATER WITHDRAWN
     Route: 048
  22. MERCAPTOPURINE [Suspect]
     Active Substance: MERCAPTOPURINE
     Dosage: UNK, MAINTAINED AND LATER WITHDRAWN
     Route: 048
  23. MERCAPTOPURINE [Suspect]
     Active Substance: MERCAPTOPURINE
     Dosage: UNK, MAINTAINED AND LATER WITHDRAWN
  24. MERCAPTOPURINE [Suspect]
     Active Substance: MERCAPTOPURINE
     Dosage: UNK, MAINTAINED AND LATER WITHDRAWN
  25. DAUNOXOME [Concomitant]
     Active Substance: DAUNORUBICIN CITRATE
     Indication: Acute lymphocytic leukaemia
     Dosage: 30 MILLIGRAM/SQ. METER, 30 MG/M2/DOSE ON DAY 32, LIPOSOMAL
     Route: 042
  26. DAUNOXOME [Concomitant]
     Active Substance: DAUNORUBICIN CITRATE
     Dosage: 30 MILLIGRAM/SQ. METER, 30 MG/M2/DOSE ON DAY 32, LIPOSOMAL
  27. DAUNOXOME [Concomitant]
     Active Substance: DAUNORUBICIN CITRATE
     Dosage: 30 MILLIGRAM/SQ. METER, 30 MG/M2/DOSE ON DAY 32, LIPOSOMAL
  28. DAUNOXOME [Concomitant]
     Active Substance: DAUNORUBICIN CITRATE
     Dosage: 30 MILLIGRAM/SQ. METER, 30 MG/M2/DOSE ON DAY 32, LIPOSOMAL
     Route: 042
  29. DAUNOXOME [Concomitant]
     Active Substance: DAUNORUBICIN CITRATE
     Dosage: UNK, TWO DOSES OF WERE OMITTED AND LATER STOPPED
     Route: 042
  30. DAUNOXOME [Concomitant]
     Active Substance: DAUNORUBICIN CITRATE
     Dosage: UNK, TWO DOSES OF WERE OMITTED AND LATER STOPPED
  31. DAUNOXOME [Concomitant]
     Active Substance: DAUNORUBICIN CITRATE
     Dosage: UNK, TWO DOSES OF WERE OMITTED AND LATER STOPPED
  32. DAUNOXOME [Concomitant]
     Active Substance: DAUNORUBICIN CITRATE
     Dosage: UNK, TWO DOSES OF WERE OMITTED AND LATER STOPPED
     Route: 042
  33. VINCRISTINE [Concomitant]
     Active Substance: VINCRISTINE
     Indication: Acute lymphocytic leukaemia
     Dosage: 1.5 MG/M2/DOSE ON DAYS 8,15, 22, 29 AND 36
  34. VINCRISTINE [Concomitant]
     Active Substance: VINCRISTINE
     Dosage: 1.5 MG/M2/DOSE ON DAYS 8,15, 22, 29 AND 36
  35. VINCRISTINE [Concomitant]
     Active Substance: VINCRISTINE
     Dosage: 1.5 MG/M2/DOSE ON DAYS 8,15, 22, 29 AND 36
     Route: 042
  36. VINCRISTINE [Concomitant]
     Active Substance: VINCRISTINE
     Dosage: 1.5 MG/M2/DOSE ON DAYS 8,15, 22, 29 AND 36
     Route: 042
  37. VINCRISTINE [Concomitant]
     Active Substance: VINCRISTINE
     Dosage: 1.5 MILLIGRAM/SQ. METER, 1.5 MILLIGRAM/SQ. METER, 1.5 MG/M2/DOSE ON DAYS 8, 15, 22 AND 29
     Route: 042
  38. VINCRISTINE [Concomitant]
     Active Substance: VINCRISTINE
     Dosage: 1.5 MILLIGRAM/SQ. METER, 1.5 MILLIGRAM/SQ. METER, 1.5 MG/M2/DOSE ON DAYS 8, 15, 22 AND 29
     Route: 042
  39. VINCRISTINE [Concomitant]
     Active Substance: VINCRISTINE
     Dosage: 1.5 MILLIGRAM/SQ. METER, 1.5 MILLIGRAM/SQ. METER, 1.5 MG/M2/DOSE ON DAYS 8, 15, 22 AND 29
  40. VINCRISTINE [Concomitant]
     Active Substance: VINCRISTINE
     Dosage: 1.5 MILLIGRAM/SQ. METER, 1.5 MILLIGRAM/SQ. METER, 1.5 MG/M2/DOSE ON DAYS 8, 15, 22 AND 29
  41. VINCRISTINE [Concomitant]
     Active Substance: VINCRISTINE
     Dosage: 1.5 MILLIGRAM/SQ. METER, MONTHLY, ~1.5 MG/M2/DOSE
     Route: 042
  42. VINCRISTINE [Concomitant]
     Active Substance: VINCRISTINE
     Dosage: 1.5 MILLIGRAM/SQ. METER, MONTHLY, ~1.5 MG/M2/DOSE
     Route: 042
  43. VINCRISTINE [Concomitant]
     Active Substance: VINCRISTINE
     Dosage: 1.5 MILLIGRAM/SQ. METER, MONTHLY, ~1.5 MG/M2/DOSE
  44. VINCRISTINE [Concomitant]
     Active Substance: VINCRISTINE
     Dosage: 1.5 MILLIGRAM/SQ. METER, MONTHLY, ~1.5 MG/M2/DOSE
  45. VINCRISTINE [Concomitant]
     Active Substance: VINCRISTINE
     Dosage: UNK, MAINTAINED AND LATER STOPPED
  46. VINCRISTINE [Concomitant]
     Active Substance: VINCRISTINE
     Dosage: UNK, MAINTAINED AND LATER STOPPED
  47. VINCRISTINE [Concomitant]
     Active Substance: VINCRISTINE
     Dosage: UNK, MAINTAINED AND LATER STOPPED
     Route: 042
  48. VINCRISTINE [Concomitant]
     Active Substance: VINCRISTINE
     Dosage: UNK, MAINTAINED AND LATER STOPPED
     Route: 042
  49. DEXAMETHASONE [Concomitant]
     Active Substance: DEXAMETHASONE
     Indication: Acute lymphocytic leukaemia
     Dosage: 6 MILLIGRAM/SQ. METER, QD, ON DAYS 1-21 FOLLOWED BY TAPERING OVER 9 DAYS
  50. DEXAMETHASONE [Concomitant]
     Active Substance: DEXAMETHASONE
     Dosage: 6 MILLIGRAM/SQ. METER, QD, ON DAYS 1-21 FOLLOWED BY TAPERING OVER 9 DAYS
     Route: 048
  51. DEXAMETHASONE [Concomitant]
     Active Substance: DEXAMETHASONE
     Dosage: 6 MILLIGRAM/SQ. METER, QD, ON DAYS 1-21 FOLLOWED BY TAPERING OVER 9 DAYS
     Route: 048
  52. DEXAMETHASONE [Concomitant]
     Active Substance: DEXAMETHASONE
     Dosage: 6 MILLIGRAM/SQ. METER, QD, ON DAYS 1-21 FOLLOWED BY TAPERING OVER 9 DAYS
  53. DEXAMETHASONE [Concomitant]
     Active Substance: DEXAMETHASONE
     Dosage: 6 MILLIGRAM/SQ. METER, MONTHLY, 6 MG/M2/DAY ONCE MONTHLY
  54. DEXAMETHASONE [Concomitant]
     Active Substance: DEXAMETHASONE
     Dosage: 6 MILLIGRAM/SQ. METER, MONTHLY, 6 MG/M2/DAY ONCE MONTHLY
     Route: 048
  55. DEXAMETHASONE [Concomitant]
     Active Substance: DEXAMETHASONE
     Dosage: 6 MILLIGRAM/SQ. METER, MONTHLY, 6 MG/M2/DAY ONCE MONTHLY
  56. DEXAMETHASONE [Concomitant]
     Active Substance: DEXAMETHASONE
     Dosage: 6 MILLIGRAM/SQ. METER, MONTHLY, 6 MG/M2/DAY ONCE MONTHLY
     Route: 048
  57. DEXAMETHASONE [Concomitant]
     Active Substance: DEXAMETHASONE
     Dosage: UNK, STOPPED
     Route: 048
  58. DEXAMETHASONE [Concomitant]
     Active Substance: DEXAMETHASONE
     Dosage: UNK, STOPPED
     Route: 048
  59. DEXAMETHASONE [Concomitant]
     Active Substance: DEXAMETHASONE
     Dosage: UNK, STOPPED
  60. DEXAMETHASONE [Concomitant]
     Active Substance: DEXAMETHASONE
     Dosage: UNK, STOPPED
  61. CYCLOPHOSPHAMIDE [Concomitant]
     Active Substance: CYCLOPHOSPHAMIDE
     Indication: Acute lymphocytic leukaemia
     Dosage: 500 MILLIGRAM/SQ. METER, 500 MG/M2/DOSE
     Route: 042
  62. CYCLOPHOSPHAMIDE [Concomitant]
     Active Substance: CYCLOPHOSPHAMIDE
     Dosage: 500 MILLIGRAM/SQ. METER, 500 MG/M2/DOSE
  63. CYCLOPHOSPHAMIDE [Concomitant]
     Active Substance: CYCLOPHOSPHAMIDE
     Dosage: 500 MILLIGRAM/SQ. METER, 500 MG/M2/DOSE
  64. CYCLOPHOSPHAMIDE [Concomitant]
     Active Substance: CYCLOPHOSPHAMIDE
     Dosage: 500 MILLIGRAM/SQ. METER, 500 MG/M2/DOSE
     Route: 042
  65. CYCLOPHOSPHAMIDE [Concomitant]
     Active Substance: CYCLOPHOSPHAMIDE
     Dosage: UNK, STOPPED
     Route: 042
  66. CYCLOPHOSPHAMIDE [Concomitant]
     Active Substance: CYCLOPHOSPHAMIDE
     Dosage: UNK, STOPPED
  67. CYCLOPHOSPHAMIDE [Concomitant]
     Active Substance: CYCLOPHOSPHAMIDE
     Dosage: UNK, STOPPED
  68. CYCLOPHOSPHAMIDE [Concomitant]
     Active Substance: CYCLOPHOSPHAMIDE
     Dosage: UNK, STOPPED
     Route: 042
  69. CYTARABINE [Concomitant]
     Active Substance: CYTARABINE
     Indication: Acute lymphocytic leukaemia
     Dosage: 75 MILLIGRAM/SQ. METER
  70. CYTARABINE [Concomitant]
     Active Substance: CYTARABINE
     Dosage: 75 MILLIGRAM/SQ. METER
     Route: 058
  71. CYTARABINE [Concomitant]
     Active Substance: CYTARABINE
     Dosage: 75 MILLIGRAM/SQ. METER
     Route: 058
  72. CYTARABINE [Concomitant]
     Active Substance: CYTARABINE
     Dosage: 75 MILLIGRAM/SQ. METER
  73. ASPARAGINASE ERWINIA CHRYSANTHEMI [Concomitant]
     Active Substance: ASPARAGINASE ERWINIA CHRYSANTHEMI
     Indication: Acute lymphocytic leukaemia
     Dosage: 10UI/M2/DOSE ON DAYS 15,18,21,24
  74. ASPARAGINASE ERWINIA CHRYSANTHEMI [Concomitant]
     Active Substance: ASPARAGINASE ERWINIA CHRYSANTHEMI
     Dosage: 10UI/M2/DOSE ON DAYS 15,18,21,24
     Route: 042
  75. ASPARAGINASE ERWINIA CHRYSANTHEMI [Concomitant]
     Active Substance: ASPARAGINASE ERWINIA CHRYSANTHEMI
     Dosage: 10UI/M2/DOSE ON DAYS 15,18,21,24
     Route: 042
  76. ASPARAGINASE ERWINIA CHRYSANTHEMI [Concomitant]
     Active Substance: ASPARAGINASE ERWINIA CHRYSANTHEMI
     Dosage: 10UI/M2/DOSE ON DAYS 15,18,21,24
  77. ASPARAGINASE ERWINIA CHRYSANTHEMI [Concomitant]
     Active Substance: ASPARAGINASE ERWINIA CHRYSANTHEMI
     Dosage: UNK, 20 UI/M2/DOSE ON DAYS 27, 30,33, 36
  78. ASPARAGINASE ERWINIA CHRYSANTHEMI [Concomitant]
     Active Substance: ASPARAGINASE ERWINIA CHRYSANTHEMI
     Dosage: UNK, 20 UI/M2/DOSE ON DAYS 27, 30,33, 36
     Route: 042
  79. ASPARAGINASE ERWINIA CHRYSANTHEMI [Concomitant]
     Active Substance: ASPARAGINASE ERWINIA CHRYSANTHEMI
     Dosage: UNK, 20 UI/M2/DOSE ON DAYS 27, 30,33, 36
  80. ASPARAGINASE ERWINIA CHRYSANTHEMI [Concomitant]
     Active Substance: ASPARAGINASE ERWINIA CHRYSANTHEMI
     Dosage: UNK, 20 UI/M2/DOSE ON DAYS 27, 30,33, 36
     Route: 042
  81. ASPARAGINASE ERWINIA CHRYSANTHEMI [Concomitant]
     Active Substance: ASPARAGINASE ERWINIA CHRYSANTHEMI
     Dosage: UNK, WITHDRAWN
     Route: 042
  82. ASPARAGINASE ERWINIA CHRYSANTHEMI [Concomitant]
     Active Substance: ASPARAGINASE ERWINIA CHRYSANTHEMI
     Dosage: UNK, WITHDRAWN
     Route: 042
  83. ASPARAGINASE ERWINIA CHRYSANTHEMI [Concomitant]
     Active Substance: ASPARAGINASE ERWINIA CHRYSANTHEMI
     Dosage: UNK, WITHDRAWN
  84. ASPARAGINASE ERWINIA CHRYSANTHEMI [Concomitant]
     Active Substance: ASPARAGINASE ERWINIA CHRYSANTHEMI
     Dosage: UNK, WITHDRAWN
  85. THIOGUANINE [Concomitant]
     Active Substance: THIOGUANINE
     Indication: Acute lymphocytic leukaemia
     Dosage: 60 MILLIGRAM/SQ. METER, QD, FOR 2 CONSECUTIVE WEEKS
     Route: 048
  86. THIOGUANINE [Concomitant]
     Active Substance: THIOGUANINE
     Dosage: 60 MILLIGRAM/SQ. METER, QD, FOR 2 CONSECUTIVE WEEKS
  87. THIOGUANINE [Concomitant]
     Active Substance: THIOGUANINE
     Dosage: 60 MILLIGRAM/SQ. METER, QD, FOR 2 CONSECUTIVE WEEKS
  88. THIOGUANINE [Concomitant]
     Active Substance: THIOGUANINE
     Dosage: 60 MILLIGRAM/SQ. METER, QD, FOR 2 CONSECUTIVE WEEKS
     Route: 048
  89. THIOGUANINE [Concomitant]
     Active Substance: THIOGUANINE
     Dosage: UNK, WITHDRAWN
     Route: 048
  90. THIOGUANINE [Concomitant]
     Active Substance: THIOGUANINE
     Dosage: UNK, WITHDRAWN
  91. THIOGUANINE [Concomitant]
     Active Substance: THIOGUANINE
     Dosage: UNK, WITHDRAWN
  92. THIOGUANINE [Concomitant]
     Active Substance: THIOGUANINE
     Dosage: UNK, WITHDRAWN
     Route: 048

REACTIONS (2)
  - Coronavirus pneumonia [Unknown]
  - Respiratory failure [Unknown]
